FAERS Safety Report 8411551 (Version 2)
Quarter: 2012Q4

REPORT INFORMATION
  Report Type: 
  Country: DK (occurrence: DK)
  Receive Date: 20120217
  Receipt Date: 20120910
  Transmission Date: 20130627
  Serious: Yes (Life-Threatening, Hospitalization)
  Sender: FDA-Public Use
  Company Number: DK-B.I. PHARMACEUTICALS,INC./RIDGEFIELD-2012-SW-00113DB

PATIENT
  Age: 65 None
  Sex: Male
  Weight: 150 kg

DRUGS (7)
  1. PRADAXA [Suspect]
     Indication: ATRIAL FIBRILLATION
     Dosage: 300 mg
     Route: 048
     Dates: start: 20111107
  2. CORDAN [Concomitant]
     Indication: ATRIAL FIBRILLATION
  3. FURIX [Concomitant]
     Dosage: 120 mg
     Route: 048
  4. KALEORID [Concomitant]
     Route: 048
  5. RAMIPRIL [Concomitant]
     Indication: HYPERTENSION
     Dosage: 10 mg
     Route: 048
  6. SELOZOK [Concomitant]
     Indication: ATRIAL FIBRILLATION
  7. SPIRON [Concomitant]
     Dosage: 50 mg
     Route: 048

REACTIONS (20)
  - Abdominal pain [Unknown]
  - Acute abdomen [Unknown]
  - Diarrhoea haemorrhagic [Unknown]
  - Cerebral infarction [Unknown]
  - Colectomy [Unknown]
  - Intestinal gangrene [Not Recovered/Not Resolved]
  - Intestinal ischaemia [Unknown]
  - Renal infarct [Unknown]
  - Gastrointestinal necrosis [Unknown]
  - Splenic infarction [Unknown]
  - Vomiting [Unknown]
  - Subileus [Unknown]
  - Gastrointestinal disorder [Unknown]
  - Renal disorder [Unknown]
  - Ascites [Unknown]
  - Gastrointestinal necrosis [Unknown]
  - Hemiparesis [Unknown]
  - Neurologic neglect syndrome [Unknown]
  - Amblyopia [Unknown]
  - Rhinorrhoea [Unknown]
